FAERS Safety Report 19140527 (Version 8)
Quarter: 2023Q2

REPORT INFORMATION
  Report Type: Spontaneous
  Country: US (occurrence: US)
  Receive Date: 20210415
  Receipt Date: 20230417
  Transmission Date: 20230722
  Serious: No
  Sender: FDA-Public Use
  Company Number: US-PFIZER INC-2021321018

PATIENT
  Age: 47 Year
  Sex: Female

DRUGS (23)
  1. IBRANCE [Suspect]
     Active Substance: PALBOCICLIB
     Indication: Breast cancer female
     Dosage: 125 MG
     Dates: start: 20210301
  2. IBRANCE [Suspect]
     Active Substance: PALBOCICLIB
     Dosage: 125 MG
     Dates: start: 20210303
  3. IBRANCE [Suspect]
     Active Substance: PALBOCICLIB
     Dosage: 125 MG
     Dates: start: 20210306
  4. IBRANCE [Suspect]
     Active Substance: PALBOCICLIB
     Dosage: 125 MG, CYCLIC (1 TABLET EVERY DAY FOR 21 DAYS ON AND 7 DAYS OFF EVERY 28 DAYS)
     Route: 048
  5. IBRANCE [Suspect]
     Active Substance: PALBOCICLIB
     Dosage: 1 TABLET EVERY DAY FOR 21 DAYS ON AND 7 DAYS OFF EVERY 28 DAYS
     Route: 048
     Dates: start: 20230206
  6. ABREVA [Concomitant]
     Active Substance: DOCOSANOL
     Dosage: UNK
  7. ANASTROZOLE [Concomitant]
     Active Substance: ANASTROZOLE
     Dosage: UNK
  8. CELEBREX [Concomitant]
     Active Substance: CELECOXIB
     Dosage: UNK
  9. COLACE [Concomitant]
     Active Substance: DOCUSATE SODIUM
     Dosage: UNK
  10. CYCLOBENZAPRINE [Concomitant]
     Active Substance: CYCLOBENZAPRINE
     Dosage: UNK
  11. DESVENLAFAXINE [Concomitant]
     Active Substance: DESVENLAFAXINE
     Dosage: UNK
  12. EPIPEN [Concomitant]
     Active Substance: EPINEPHRINE
     Dosage: UNK
  13. INTEGRA F [Concomitant]
     Active Substance: ASCORBIC ACID\FERROUS ASPARTO GLYCINATE\FERROUS FUMARATE\FOLIC ACID\NIACIN
     Dosage: UNK
  14. LEUPROLIDE ACETATE [Concomitant]
     Active Substance: LEUPROLIDE ACETATE
     Dosage: UNK
  15. PRISTIQ EXTENDED-RELEASE [Concomitant]
     Active Substance: DESVENLAFAXINE SUCCINATE
     Dosage: UNK
  16. RITALIN LA [Concomitant]
     Active Substance: METHYLPHENIDATE HYDROCHLORIDE
     Dosage: UNK
  17. ROXICODONE [Concomitant]
     Active Substance: OXYCODONE HYDROCHLORIDE
     Dosage: UNK
  18. TADALAFIL [Concomitant]
     Active Substance: TADALAFIL
     Dosage: UNK
  19. TOPROL XL [Concomitant]
     Active Substance: METOPROLOL SUCCINATE
     Dosage: UNK
  20. VALSARTAN [Concomitant]
     Active Substance: VALSARTAN
     Dosage: UNK
  21. VITAMIN D NOS [Concomitant]
     Active Substance: VITAMIN D NOS
     Dosage: UNK
  22. ZOLEDRONIC [Concomitant]
     Active Substance: ZOLEDRONIC ACID
     Dosage: UNK
  23. MELOXICAM [Concomitant]
     Active Substance: MELOXICAM

REACTIONS (11)
  - Swelling [Not Recovered/Not Resolved]
  - Nausea [Not Recovered/Not Resolved]
  - Pruritus [Not Recovered/Not Resolved]
  - Peripheral swelling [Not Recovered/Not Resolved]
  - Constipation [Unknown]
  - Dyspnoea [Not Recovered/Not Resolved]
  - Product dose omission issue [Unknown]
  - Hypoaesthesia [Unknown]
  - Asthenia [Unknown]
  - Dyspepsia [Unknown]
  - Neoplasm progression [Unknown]

NARRATIVE: CASE EVENT DATE: 20210101
